FAERS Safety Report 7412431-6 (Version None)
Quarter: 2011Q2

REPORT INFORMATION
  Report Type: 
  Country: None (occurrence: None)
  Receive Date: 20110413
  Receipt Date: 20110401
  Transmission Date: 20111010
  Serious: Yes (Other)
  Sender: FDA-Public Use
  Company Number: PHHY2011CN29662

PATIENT
  Age: 50 Year
  Sex: Male

DRUGS (2)
  1. SANDOSTATIN LAR [Suspect]
     Indication: GASTRIC ULCER HAEMORRHAGE
     Dosage: 20 MG, QD
     Route: 058
     Dates: start: 20110330
  2. SANDOSTATIN LAR [Suspect]
     Dosage: 20 MG, QD
     Route: 058
     Dates: start: 20110331

REACTIONS (4)
  - INCORRECT ROUTE OF DRUG ADMINISTRATION [None]
  - MEDICATION ERROR [None]
  - ANGIOPATHY [None]
  - OVERDOSE [None]
